FAERS Safety Report 11823791 (Version 1)
Quarter: 2015Q4

REPORT INFORMATION
  Report Type: Spontaneous
  Country: US (occurrence: US)
  Receive Date: 20151210
  Receipt Date: 20151210
  Transmission Date: 20160305
  Serious: Yes (Other)
  Sender: FDA-Public Use
  Company Number: US-CELGENEUS-USA-2015120884

PATIENT
  Age: 70 Year
  Sex: Female
  Weight: 48.58 kg

DRUGS (1)
  1. POMALYST [Suspect]
     Active Substance: POMALIDOMIDE
     Indication: PLASMA CELL MYELOMA
     Dosage: 4 MILLIGRAM
     Route: 048
     Dates: start: 201406, end: 20151203

REACTIONS (2)
  - Plasma cell myeloma [Unknown]
  - No therapeutic response [Unknown]

NARRATIVE: CASE EVENT DATE: 20151203
